FAERS Safety Report 10541155 (Version 1)
Quarter: 2014Q4

REPORT INFORMATION
  Report Type: Spontaneous
  Country: US (occurrence: None)
  Receive Date: 20141010
  Receipt Date: 20141010
  Transmission Date: 20150529
  Serious: Yes (Other)
  Sender: FDA-Public Use
  Company Number: 163-POMAL-14042514

PATIENT
  Age: 59 Year
  Sex: Female
  Weight: 81.6 kg

DRUGS (13)
  1. POMALYST [Suspect]
     Active Substance: POMALIDOMIDE
     Indication: PLASMA CELL MYELOMA
     Dosage: 4 MG, 21 IN 28 D
     Route: 048
     Dates: start: 20120810
  2. DEXAMETHASONE (DEXAMETHASONE) (UNKNOWN) [Concomitant]
     Active Substance: DEXAMETHASONE
  3. BENICAR (OLMESARTAN MEDOXOMIL) (UNKNOWN) [Concomitant]
  4. VYTORIN (INEGY) (UNKNOWN) [Concomitant]
  5. VELCADE [Concomitant]
     Active Substance: BORTEZOMIB
  6. MUCINEX DM (TUSSIN DM) (UNKNOWN) [Concomitant]
  7. ALEVE (NAPROXEN SODIUM) (UNKNOWN) [Concomitant]
  8. CALCIUM CARBONATE (CALCIUM CARBONATE) (UNKNOWN) (CALCIUM CARBONATE) [Concomitant]
     Active Substance: CALCIUM CARBONATE
  9. IMODIUM AD (LOPERAMIDE HYDROCHLORIDE) (UNKNOWN) [Concomitant]
  10. MAGNESIUM (MAGNESIUM) (UNKNOWN) [Concomitant]
  11. ALPRAZOLAM (ALPRAZOLAM) (UNKNOWN) (ALPRAZOLAM) [Concomitant]
     Active Substance: ALPRAZOLAM
  12. MAXALT (RIZATRIPTAN BNEZOATE) (UNKNOWN) [Concomitant]
  13. ADVIL (IBUPROFEN) (UNKNOWN) [Concomitant]

REACTIONS (8)
  - Skin disorder [None]
  - Fatigue [None]
  - Nasopharyngitis [None]
  - Lymphoedema [None]
  - Migraine [None]
  - Bronchitis [None]
  - Atypical pneumonia [None]
  - Joint swelling [None]

NARRATIVE: CASE EVENT DATE: 2014
